FAERS Safety Report 13801659 (Version 4)
Quarter: 2017Q4

REPORT INFORMATION
  Report Type: Report from Study
  Country: US (occurrence: US)
  Receive Date: 20170727
  Receipt Date: 20171108
  Transmission Date: 20180320
  Serious: Yes (Hospitalization, Other)
  Sender: FDA-Public Use
  Company Number: US-BAYER-2017-024225

PATIENT
  Age: 72 Year
  Sex: Female

DRUGS (21)
  1. MULTIVITAMIN [Concomitant]
     Active Substance: VITAMINS
  2. CHONDROITIN [Concomitant]
     Active Substance: CHONDROITIN
  3. GLUCOSAMINE [Concomitant]
     Active Substance: GLUCOSAMINE
  4. MILK THISTLE [Concomitant]
     Active Substance: DIETARY SUPPLEMENT\HERBALS\MILK THISTLE
  5. HYDROCHLOROTHIAZIDE. [Concomitant]
     Active Substance: HYDROCHLOROTHIAZIDE
  6. LEVOTHYROXIN [Concomitant]
     Active Substance: LEVOTHYROXINE
  7. MUPIROCIN CALCIUM. [Concomitant]
     Active Substance: MUPIROCIN CALCIUM
  8. NEXAVAR [Suspect]
     Active Substance: SORAFENIB
     Indication: METASTASES TO LYMPH NODES
     Dosage: 200 MG, QD
     Route: 048
     Dates: start: 20170214, end: 2017
  9. NEXAVAR [Suspect]
     Active Substance: SORAFENIB
     Indication: HEPATOCELLULAR CARCINOMA
     Dosage: 200 MG, QD
     Route: 048
     Dates: start: 2017, end: 20171103
  10. SYNTHROID [Concomitant]
     Active Substance: LEVOTHYROXINE SODIUM
  11. HYDROCORTISONE [HYDROCORTISONE] [Concomitant]
  12. NEXAVAR [Suspect]
     Active Substance: SORAFENIB
     Indication: CHOLANGIOCARCINOMA
     Dosage: 200 MG, BID
     Route: 048
     Dates: start: 20170106, end: 20170209
  13. TRAMADOL HYDROCHLORIDE. [Concomitant]
     Active Substance: TRAMADOL HYDROCHLORIDE
  14. NEXAVAR [Suspect]
     Active Substance: SORAFENIB
     Indication: HEPATOCELLULAR CARCINOMA
     Dosage: 200 MG, QOD
     Route: 048
     Dates: start: 20170613, end: 2017
  15. CLINDAMYCIN. [Concomitant]
     Active Substance: CLINDAMYCIN
     Dosage: UNK
     Dates: end: 2017
  16. NAPROXEN. [Concomitant]
     Active Substance: NAPROXEN
  17. NEXAVAR [Suspect]
     Active Substance: SORAFENIB
     Indication: HEPATOCELLULAR CARCINOMA
     Dosage: UNK
     Route: 048
     Dates: start: 20161228
  18. VITAMIN D [Concomitant]
     Active Substance: CHOLECALCIFEROL
  19. GABAPENTIN. [Concomitant]
     Active Substance: GABAPENTIN
  20. FLORASTOR [Concomitant]
     Active Substance: SACCHAROMYCES CEREVISIAE
  21. NEXAVAR [Suspect]
     Active Substance: SORAFENIB
     Indication: HEPATOCELLULAR CARCINOMA
     Dosage: 200 MG, QD
     Route: 048
     Dates: start: 201704, end: 2017

REACTIONS (42)
  - Cough [Not Recovered/Not Resolved]
  - Abdominal pain [None]
  - Blood pressure systolic increased [None]
  - Thrombophlebitis [Recovered/Resolved]
  - Back pain [Not Recovered/Not Resolved]
  - Dyspnoea [None]
  - Peripheral swelling [None]
  - Diarrhoea [Not Recovered/Not Resolved]
  - Cellulitis [None]
  - Viral infection [None]
  - Palmar-plantar erythrodysaesthesia syndrome [Recovered/Resolved with Sequelae]
  - Incontinence [Not Recovered/Not Resolved]
  - Dizziness [Not Recovered/Not Resolved]
  - Chest pain [None]
  - Cellulitis [Recovered/Resolved]
  - Blister rupture [Not Recovered/Not Resolved]
  - Dry skin [Not Recovered/Not Resolved]
  - Dysphonia [Not Recovered/Not Resolved]
  - Pruritus [None]
  - Stomatitis [None]
  - Gait disturbance [None]
  - Cellulitis [Not Recovered/Not Resolved]
  - Skin burning sensation [Not Recovered/Not Resolved]
  - Epistaxis [Not Recovered/Not Resolved]
  - Skin disorder [Recovered/Resolved with Sequelae]
  - Palmar-plantar erythrodysaesthesia syndrome [None]
  - Palmar-plantar erythrodysaesthesia syndrome [Recovered/Resolved]
  - Neuropathy peripheral [Not Recovered/Not Resolved]
  - Fatigue [None]
  - Alopecia [Recovering/Resolving]
  - Palmar-plantar erythrodysaesthesia syndrome [Not Recovered/Not Resolved]
  - Vulvovaginal pruritus [Not Recovered/Not Resolved]
  - Diarrhoea [Not Recovered/Not Resolved]
  - Alopecia [Unknown]
  - Epistaxis [Unknown]
  - Flatulence [None]
  - Sinus congestion [Not Recovered/Not Resolved]
  - Vulvovaginal discomfort [Not Recovered/Not Resolved]
  - Skin induration [Not Recovered/Not Resolved]
  - Rash [Recovering/Resolving]
  - Radiation associated pain [None]
  - Lymphadenopathy [Not Recovered/Not Resolved]

NARRATIVE: CASE EVENT DATE: 2017
